FAERS Safety Report 8849372 (Version 1)
Quarter: 2012Q4

REPORT INFORMATION
  Report Type: Spontaneous
  Country: US (occurrence: None)
  Receive Date: 20121017
  Receipt Date: 20121017
  Transmission Date: 20130627
  Serious: Yes (Hospitalization, Other)
  Sender: FDA-Public Use
  Company Number: VAL_00925_2012

PATIENT
  Age: 27 Year
  Sex: Female

DRUGS (1)
  1. PARLODEL [Suspect]
     Indication: SUPPRESSED LACTATION
     Dosage: DF

REACTIONS (10)
  - Blood pressure increased [None]
  - Chest pain [None]
  - Headache [None]
  - Unresponsive to stimuli [None]
  - Hypopnoea [None]
  - Tachycardia [None]
  - Mydriasis [None]
  - Myocardial infarction [None]
  - Coronary artery stenosis [None]
  - Encephalopathy [None]
